FAERS Safety Report 24629573 (Version 1)
Quarter: 2024Q4

REPORT INFORMATION
  Report Type: Spontaneous
  Country: US (occurrence: US)
  Receive Date: 20241118
  Receipt Date: 20241118
  Transmission Date: 20250114
  Serious: No
  Sender: ROCHE
  Company Number: US-ROCHE-10000129839

PATIENT
  Age: 65 Year
  Sex: Female
  Weight: 70.31 kg

DRUGS (1)
  1. ACTEMRA [Suspect]
     Active Substance: TOCILIZUMAB
     Indication: Rheumatoid arthritis
     Dosage: 162MG/0.9M
     Route: 050
     Dates: start: 20241101

REACTIONS (2)
  - Intentional product misuse [Unknown]
  - No adverse event [Unknown]

NARRATIVE: CASE EVENT DATE: 20241108
